FAERS Safety Report 8771323 (Version 1)
Quarter: 2012Q4

REPORT INFORMATION
  Report Type: 
  Country: US (occurrence: US)
  Receive Date: 20120906
  Receipt Date: 20120906
  Transmission Date: 20130627
  Serious: Yes (Hospitalization)
  Sender: FDA-Public Use
  Company Number: US-GLAXOSMITHKLINE-A0735851A

PATIENT
  Age: 66 Year
  Sex: Male
  Weight: 97.7 kg

DRUGS (6)
  1. AVANDIA [Suspect]
     Indication: TYPE 2 DIABETES MELLITUS
     Dosage: 4MG Twice per day
     Route: 048
     Dates: start: 20060526, end: 2007
  2. AVANDARYL [Suspect]
     Indication: TYPE 2 DIABETES MELLITUS
     Dosage: 4MG Twice per day
     Route: 048
     Dates: start: 20060220, end: 20060509
  3. AVANDAMET [Suspect]
     Indication: TYPE 2 DIABETES MELLITUS
     Dates: start: 20031229, end: 20060110
  4. METFORMIN [Concomitant]
     Dates: end: 200606
  5. ACTOS [Concomitant]
     Dates: start: 200708
  6. TOPROL [Concomitant]

REACTIONS (3)
  - Myocardial infarction [Unknown]
  - Heart injury [Unknown]
  - Cardiac failure congestive [Unknown]
